FAERS Safety Report 25486696 (Version 1)
Quarter: 2025Q2

REPORT INFORMATION
  Report Type: Spontaneous
  Country: SE (occurrence: SE)
  Receive Date: 20250627
  Receipt Date: 20250627
  Transmission Date: 20250716
  Serious: Yes (Other)
  Sender: ROCHE
  Company Number: None

PATIENT
  Age: 7 Year
  Sex: Male

DRUGS (2)
  1. BEVACIZUMAB [Suspect]
     Active Substance: BEVACIZUMAB
     Indication: Astrocytoma, low grade
     Dosage: 10 MILLIGRAM/KILOGRAM, Q2WK
     Route: 065
     Dates: start: 202112, end: 202204
  2. VINBLASTINE [Concomitant]
     Active Substance: VINBLASTINE
     Indication: Brain neoplasm
     Dates: start: 202106

REACTIONS (2)
  - Astrocytoma, low grade [Unknown]
  - Off label use [Unknown]
